FAERS Safety Report 11821541 (Version 1)
Quarter: 2015Q4

REPORT INFORMATION
  Report Type: Spontaneous
  Country: US (occurrence: US)
  Receive Date: 20151210
  Receipt Date: 20151210
  Transmission Date: 20160305
  Serious: Yes (Hospitalization, Other)
  Sender: FDA-Public Use
  Company Number: US-JNJFOC-20150305882

PATIENT
  Sex: Male
  Weight: 75.8 kg

DRUGS (3)
  1. IMBRUVICA [Suspect]
     Active Substance: IBRUTINIB
     Indication: CHRONIC LYMPHOCYTIC LEUKAEMIA
     Route: 048
     Dates: start: 20141112, end: 20141121
  2. IMBRUVICA [Suspect]
     Active Substance: IBRUTINIB
     Indication: CHRONIC LYMPHOCYTIC LEUKAEMIA
     Route: 048
     Dates: start: 20140910, end: 20141102
  3. IMBRUVICA [Suspect]
     Active Substance: IBRUTINIB
     Indication: CHRONIC LYMPHOCYTIC LEUKAEMIA
     Route: 048
     Dates: end: 20150128

REACTIONS (12)
  - Pleural effusion [Unknown]
  - Fatigue [Unknown]
  - Atrial fibrillation [Unknown]
  - Productive cough [Unknown]
  - Fall [Unknown]
  - Non-cardiac chest pain [Unknown]
  - Pneumonia [Unknown]
  - Malnutrition [Unknown]
  - Asthenia [Unknown]
  - Bacteraemia [Unknown]
  - Respiratory tract infection [Unknown]
  - Balance disorder [Unknown]

NARRATIVE: CASE EVENT DATE: 2014
